FAERS Safety Report 16965399 (Version 2)
Quarter: 2020Q1

REPORT INFORMATION
  Report Type: Spontaneous
  Country: US (occurrence: US)
  Receive Date: 20191028
  Receipt Date: 20200105
  Transmission Date: 20200409
  Serious: No
  Sender: FDA-Public Use
  Company Number: US-AMGEN-USASP2019174273

PATIENT
  Sex: Female

DRUGS (3)
  1. FASLODEX [Concomitant]
     Active Substance: FULVESTRANT
     Dosage: 125 MILLIGRAM, 21 DAYS AND OFF 7 DAYS
     Route: 048
     Dates: start: 20190930
  2. XGEVA [Suspect]
     Active Substance: DENOSUMAB
     Indication: PRODUCT USED FOR UNKNOWN INDICATION
     Dosage: UNK
     Route: 065
  3. IBRANCE [Suspect]
     Active Substance: PALBOCICLIB
     Indication: BREAST CANCER
     Dosage: 125 MILLIGRAM
     Route: 065

REACTIONS (6)
  - Headache [Recovered/Resolved]
  - Hyperhidrosis [Recovered/Resolved]
  - Chills [Recovered/Resolved]
  - Fatigue [Recovered/Resolved]
  - Nausea [Recovered/Resolved]
  - Vomiting [Recovered/Resolved]

NARRATIVE: CASE EVENT DATE: 2019
